FAERS Safety Report 8067815-2 (Version None)
Quarter: 2012Q1

REPORT INFORMATION
  Report Type: 
  Country: None (occurrence: None)
  Receive Date: 20120124
  Receipt Date: 20120109
  Transmission Date: 20120608
  Serious: Yes (Hospitalization)
  Sender: FDA-Public Use
  Company Number: US-JUTA GMBH-2012-00967

PATIENT
  Age: 51 Year
  Sex: Male

DRUGS (2)
  1. SIMVASTATIN [Suspect]
     Indication: DYSLIPIDAEMIA
     Dosage: X 10 YEARS
     Route: 065
  2. BUPIVACAINE HCL [Suspect]
     Indication: PAIN
     Dosage: TOTAL DOSAGE 770 MG
     Route: 050

REACTIONS (2)
  - HEPATOTOXICITY [None]
  - DRUG INTERACTION [None]
